FAERS Safety Report 19959893 (Version 1)
Quarter: 2021Q4

REPORT INFORMATION
  Report Type: Spontaneous
  Country: US (occurrence: US)
  Receive Date: 20211013
  Receipt Date: 20211013
  Transmission Date: 20220303
  Serious: Yes (Hospitalization)
  Sender: FDA-Public Use
  Company Number: None

PATIENT
  Sex: Male
  Weight: 116 kg

DRUGS (1)
  1. TEMOZOLOMIDE [Suspect]
     Active Substance: TEMOZOLOMIDE
     Dates: end: 20191001

REACTIONS (5)
  - Headache [None]
  - Limb discomfort [None]
  - Aphasia [None]
  - Asthenia [None]
  - Neoplasm progression [None]

NARRATIVE: CASE EVENT DATE: 20210921
